FAERS Safety Report 7080736-7 (Version None)
Quarter: 2010Q4

REPORT INFORMATION
  Report Type: 
  Country: None (occurrence: None)
  Receive Date: 20101103
  Receipt Date: 20101025
  Transmission Date: 20110411
  Serious: Yes (Hospitalization)
  Sender: FDA-Public Use
  Company Number: KR-ASTRAZENECA-2010SE50634

PATIENT
  Age: 28746 Day
  Sex: Male

DRUGS (8)
  1. CRESTOR [Suspect]
     Indication: HYPERLIPIDAEMIA
     Route: 048
     Dates: start: 20041027
  2. SIGMART [Concomitant]
     Indication: ANGINA PECTORIS
     Dates: start: 20040407
  3. SELBEX [Concomitant]
     Indication: PROPHYLAXIS AGAINST GASTROINTESTINAL ULCER
     Dates: start: 20040407
  4. ATOCK [Concomitant]
     Dates: start: 20050105
  5. BISOLVON [Concomitant]
     Indication: HYPERTENSION
     Dates: start: 20050105
  6. MICARDIS HCT [Concomitant]
     Indication: HYPERTENSION
     Dosage: 40/12.5 MG
     Dates: start: 20040407
  7. TOREM [Concomitant]
     Indication: CARDIAC FAILURE CHRONIC
     Dates: start: 20050105
  8. TAMSULOSIN HCL [Concomitant]
     Indication: BENIGN PROSTATIC HYPERPLASIA
     Dates: start: 20050125

REACTIONS (1)
  - PROSTATE CANCER [None]
